FAERS Safety Report 25648163 (Version 1)
Quarter: 2025Q3

REPORT INFORMATION
  Report Type: Spontaneous
  Country: US (occurrence: US)
  Receive Date: 20250806
  Receipt Date: 20250806
  Transmission Date: 20251021
  Serious: No
  Sender: SANOFI AVENTIS
  Company Number: US-SA-2025SA225256

PATIENT
  Age: 40 Year
  Sex: Female
  Weight: 61.36 kg

DRUGS (17)
  1. DUPIXENT [Suspect]
     Active Substance: DUPILUMAB
     Dates: start: 2025, end: 2025
  2. DUPIXENT [Suspect]
     Active Substance: DUPILUMAB
     Dates: start: 2025
  3. LUMRYZ [Suspect]
     Active Substance: SODIUM OXYBATE
     Indication: Narcolepsy
     Dosage: 4.5 G, QD
     Route: 048
     Dates: start: 202407, end: 202408
  4. LUMRYZ [Suspect]
     Active Substance: SODIUM OXYBATE
     Dosage: 6 G, AC+HS
     Route: 048
     Dates: start: 202408, end: 2024
  5. LUMRYZ [Suspect]
     Active Substance: SODIUM OXYBATE
     Dosage: 7.5 G, QD
     Route: 048
  6. AZELASTINE HYDROCHLORIDE\FLUTICASONE PROPIONATE [Concomitant]
     Active Substance: AZELASTINE HYDROCHLORIDE\FLUTICASONE PROPIONATE
  7. MONTELUKAST SODIUM [Concomitant]
     Active Substance: MONTELUKAST SODIUM
  8. SPIRONOLACTONE [Concomitant]
     Active Substance: SPIRONOLACTONE
  9. VITAMIN D2 [Concomitant]
     Active Substance: ERGOCALCIFEROL
  10. UBRELVY [Concomitant]
     Active Substance: UBROGEPANT
  11. VITAMIN B COMPLEX WITH VITAMIN C [ASCORBIC ACID;CYANOCOBALAMIN;FOLIC A [Concomitant]
  12. GINKGO [Concomitant]
     Active Substance: GINKGO
  13. MAGNESIUM [Concomitant]
     Active Substance: MAGNESIUM
  14. VITAMIN E [Concomitant]
     Active Substance: .ALPHA.-TOCOPHEROL
  15. WIXELA INHUB [Concomitant]
     Active Substance: FLUTICASONE PROPIONATE\SALMETEROL XINAFOATE
  16. LEXAPRO [Concomitant]
     Active Substance: ESCITALOPRAM OXALATE
  17. BREO ELLIPTA [Concomitant]
     Active Substance: FLUTICASONE FUROATE\VILANTEROL TRIFENATATE

REACTIONS (5)
  - Hiatus hernia [Unknown]
  - Gastrooesophageal reflux disease [Unknown]
  - Rotator cuff syndrome [Unknown]
  - Eye infection [Not Recovered/Not Resolved]
  - Sinuplasty [Unknown]

NARRATIVE: CASE EVENT DATE: 20250101
